FAERS Safety Report 8567838-0 (Version None)
Quarter: 2012Q3

REPORT INFORMATION
  Report Type: 
  Country: None (occurrence: None)
  Receive Date: 20120803
  Receipt Date: 20120730
  Transmission Date: 20120928
  Serious: Yes (Other)
  Sender: FDA-Public Use
  Company Number: CA-ROCHE-1080796

PATIENT
  Sex: Female

DRUGS (6)
  1. PULMICORT [Concomitant]
  2. VENTOLIN [Concomitant]
  3. PREDNISONE [Concomitant]
  4. SPIRIVA [Concomitant]
  5. XOLAIR [Suspect]
     Indication: ASTHMA
     Route: 058
     Dates: start: 20120618
  6. FLUTICASONE PROPIONATE [Concomitant]

REACTIONS (4)
  - DYSPHONIA [None]
  - ASTHMA [None]
  - DIZZINESS [None]
  - APHONIA [None]
